FAERS Safety Report 22643385 (Version 2)
Quarter: 2023Q4

REPORT INFORMATION
  Report Type: Report from Study
  Country: US (occurrence: US)
  Receive Date: 20230627
  Receipt Date: 20231120
  Transmission Date: 20240109
  Serious: No
  Sender: FDA-Public Use
  Company Number: US-ACADIA PHARMACEUTICALS INC.-ACA-2023-PIM-002183

PATIENT
  Sex: Female

DRUGS (7)
  1. NUPLAZID [Suspect]
     Active Substance: PIMAVANSERIN TARTRATE
     Indication: Parkinson^s disease
     Dosage: 34 MILLIGRAM, QD
     Route: 048
     Dates: start: 20210330
  2. AMANTADINE [Concomitant]
     Active Substance: AMANTADINE
     Dosage: 100 MILLIGRAM
  3. GOCOVRI [Concomitant]
     Active Substance: AMANTADINE
     Dosage: 137 MILLIGRAM
  4. LEVODOPA [Concomitant]
     Active Substance: LEVODOPA
  5. ROPINIROLE [Concomitant]
     Active Substance: ROPINIROLE
     Dosage: 8 MILLIGRAM
  6. SIMVASTATIN [Concomitant]
     Active Substance: SIMVASTATIN
     Dosage: 20 MILLIGRAM
  7. XADAGO [Concomitant]
     Active Substance: SAFINAMIDE MESYLATE
     Dosage: 50 MILLIGRAM

REACTIONS (4)
  - Product dose omission issue [Unknown]
  - Nonspecific reaction [Unknown]
  - Back pain [Not Recovered/Not Resolved]
  - Nonspecific reaction [Not Recovered/Not Resolved]
